FAERS Safety Report 7385697-9 (Version None)
Quarter: 2011Q1

REPORT INFORMATION
  Report Type: 
  Country: None (occurrence: None)
  Receive Date: 20110322
  Receipt Date: 20110308
  Transmission Date: 20110831
  Serious: Yes (Death)
  Sender: FDA-Public Use
  Company Number: OTH-PAT-2011002

PATIENT
  Age: 65 Year
  Sex: Male

DRUGS (11)
  1. WARFARIN [Concomitant]
  2. FERROUS SULFATE TAB [Concomitant]
  3. ASPIRIN [Concomitant]
  4. LISINOPRIL [Concomitant]
  5. TERAZOSIN [Concomitant]
  6. FOLIC ACID [Concomitant]
  7. CYSTADANE [Suspect]
     Indication: HOMOCYSTINURIA
     Dosage: 6 G EVERY DAY;
  8. FUROSEMIDE [Concomitant]
  9. TESTOSTERONE CYPIONATE [Concomitant]
  10. GABAPENTIN [Concomitant]
  11. CYANOCOBALAMIN [Concomitant]

REACTIONS (1)
  - CARDIO-RESPIRATORY ARREST [None]
